FAERS Safety Report 7828766-9 (Version None)
Quarter: 2011Q4

REPORT INFORMATION
  Report Type: 
  Country: None (occurrence: None)
  Receive Date: 20111020
  Receipt Date: 20110112
  Transmission Date: 20120403
  Serious: No
  Sender: FDA-Public Use
  Company Number: US-MYLANLABS-2011S1001059

PATIENT
  Age: 61 Year
  Sex: Female
  Weight: 83.92 kg

DRUGS (7)
  1. HYDROXYCHLOROQUINE SULFATE [Concomitant]
     Indication: SYSTEMIC LUPUS ERYTHEMATOSUS
     Route: 048
     Dates: start: 20090801
  2. CALCIUM CITRATE/VITAMIN D [Concomitant]
     Route: 048
  3. MULTI-VITAMIN [Concomitant]
     Route: 048
  4. CLONIDINE HCL [Concomitant]
     Indication: BLOOD PRESSURE INCREASED
     Route: 048
     Dates: start: 20080101
  5. TEKTURNA [Concomitant]
     Indication: BLOOD PRESSURE INCREASED
     Route: 048
     Dates: start: 20100101
  6. METHYLDOPA [Concomitant]
     Indication: BLOOD PRESSURE INCREASED
     Route: 048
     Dates: start: 20101229
  7. CARVEDILOL [Suspect]
     Indication: BLOOD PRESSURE INCREASED
     Route: 048
     Dates: start: 20101029

REACTIONS (9)
  - PRURITUS [None]
  - RASH [None]
  - DRY MOUTH [None]
  - DIZZINESS [None]
  - FATIGUE [None]
  - NERVOUSNESS [None]
  - SWELLING [None]
  - DISTURBANCE IN ATTENTION [None]
  - TINNITUS [None]
